FAERS Safety Report 8369605-X (Version None)
Quarter: 2012Q2

REPORT INFORMATION
  Report Type: 
  Country: None (occurrence: None)
  Receive Date: 20120518
  Receipt Date: 20120510
  Transmission Date: 20120825
  Serious: Yes (Disabling)
  Sender: FDA-Public Use
  Company Number: DE-UCBSA-032181

PATIENT
  Age: 47 Year
  Sex: Male
  Weight: 87 kg

DRUGS (13)
  1. AMLODIPINE BESYLATE [Concomitant]
     Indication: HYPERTENSION
  2. ALENDRONATE SODIUM [Concomitant]
     Indication: OSTEOPOROSIS
     Route: 048
     Dates: start: 20100412, end: 20110502
  3. METHOTREXATE SODIUM [Concomitant]
     Indication: RHEUMATOID ARTHRITIS
     Dosage: QS
     Dates: start: 20111219
  4. OMEPRAZOLE [Concomitant]
     Indication: ANTACID THERAPY
     Dosage: ROUTE 144
     Dates: start: 20090312
  5. METHOTREXATE [Concomitant]
     Indication: RHEUMATOID ARTHRITIS
     Dosage: QS
     Dates: start: 20090429
  6. PARACETAMOL COMP [Concomitant]
     Indication: RHEUMATOID ARTHRITIS
     Dates: start: 20110615
  7. CIMZIA [Suspect]
     Dosage: NO OF DOSES RECEIVED :24
     Route: 058
     Dates: start: 20101111, end: 20110913
  8. HYDROCHLOROTHIAZIDE-BETA [Concomitant]
     Indication: HYPERTENSION
  9. MARCUMAR [Concomitant]
     Indication: PULMONARY EMBOLISM
     Dosage: IF NEEDED
     Dates: start: 20100301
  10. PREDNISOLONE [Concomitant]
     Indication: RHEUMATOID ARTHRITIS
     Dates: start: 20100630
  11. DEKRISTOL [Concomitant]
     Indication: OSTEOPOROSIS
     Dosage: DOSE  20000 IE  FREQ: QA
     Dates: start: 20100218
  12. CIMZIA [Suspect]
     Indication: RHEUMATOID ARTHRITIS
     Route: 058
     Dates: start: 20110914, end: 20120207
  13. FOLIC ACID [Concomitant]
     Indication: PRODUCT USED FOR UNKNOWN INDICATION
     Dosage: ROUTE : 144
     Dates: start: 20090429

REACTIONS (1)
  - BONE INFARCTION [None]
